FAERS Safety Report 7617427-7 (Version None)
Quarter: 2011Q3

REPORT INFORMATION
  Report Type: 
  Country: None (occurrence: None)
  Receive Date: 20110718
  Receipt Date: 20110713
  Transmission Date: 20111222
  Serious: No
  Sender: FDA-Public Use
  Company Number: US-PFIZER INC-2011158640

PATIENT
  Sex: Female

DRUGS (1)
  1. SUTENT [Suspect]
     Dosage: UNK

REACTIONS (5)
  - MUSCLE INJURY [None]
  - HYPERHIDROSIS [None]
  - BACK DISORDER [None]
  - HYPOAESTHESIA [None]
  - NASOPHARYNGITIS [None]
